FAERS Safety Report 20809568 (Version 1)
Quarter: 2022Q2

REPORT INFORMATION
  Report Type: Spontaneous
  Country: US (occurrence: None)
  Receive Date: 20220510
  Receipt Date: 20220510
  Transmission Date: 20220721
  Serious: Yes (Hospitalization)
  Sender: FDA-Public Use
  Company Number: None

PATIENT
  Sex: Female

DRUGS (1)
  1. REBIF [Suspect]
     Active Substance: INTERFERON BETA-1A
     Indication: Multiple sclerosis
     Dosage: OTHER STRENGTH : 44MCG/0.5ML;?FREQUENCY : 3 TIMES A WEEK;?
     Route: 058
     Dates: start: 20130215

REACTIONS (2)
  - Radiation injury [None]
  - COVID-19 [None]
